FAERS Safety Report 18516813 (Version 1)
Quarter: 2020Q4

REPORT INFORMATION
  Report Type: Spontaneous
  Country: FR (occurrence: FR)
  Receive Date: 20201118
  Receipt Date: 20201118
  Transmission Date: 20210114
  Serious: Yes (Hospitalization)
  Sender: FDA-Public Use
  Company Number: FR-TEVA-2020-FR-1848719

PATIENT
  Age: 73 Year
  Sex: Female
  Weight: 74 kg

DRUGS (7)
  1. EMEND [Suspect]
     Active Substance: APREPITANT
     Indication: CHEMOTHERAPY SIDE EFFECT PROPHYLAXIS
     Dosage: 125 MG
     Route: 048
     Dates: start: 20201016, end: 20201018
  2. INDAPAMIDE. [Suspect]
     Active Substance: INDAPAMIDE
     Indication: HYPERTENSION
     Dosage: 2.5 MG
     Route: 048
     Dates: end: 20201018
  3. ENDOXAN [Suspect]
     Active Substance: CYCLOPHOSPHAMIDE
     Indication: BREAST CANCER
     Dosage: 700 MG
     Route: 042
     Dates: start: 20201016, end: 20201016
  4. PELMEG 6 MG, SOLUTION INJECTABLE EN SERINGUE PREREMPLIE [Suspect]
     Active Substance: PEGFILGRASTIM
     Indication: CHEMOTHERAPY SIDE EFFECT PROPHYLAXIS
     Dates: start: 20201016, end: 20201016
  5. ZOPHREN 8 MG/4 ML, SOLUTION INJECTABLE EN SERINGUE PRE-REMPLIE [Suspect]
     Active Substance: ONDANSETRON
     Indication: CHEMOTHERAPY SIDE EFFECT PROPHYLAXIS
     Dosage: 8 MG
     Route: 042
     Dates: start: 20201016, end: 20201016
  6. EPIRUBICINE [Suspect]
     Active Substance: EPIRUBICIN
     Indication: BREAST CANCER
     Dosage: 160 MG
     Route: 042
     Dates: start: 20201016, end: 20201016
  7. SOLU-MEDROL [Suspect]
     Active Substance: METHYLPREDNISOLONE SODIUM SUCCINATE
     Indication: CHEMOTHERAPY SIDE EFFECT PROPHYLAXIS
     Dosage: 80 MG
     Route: 042
     Dates: start: 20201016, end: 20201016

REACTIONS (1)
  - Hyponatraemia [Recovering/Resolving]

NARRATIVE: CASE EVENT DATE: 20201017
